FAERS Safety Report 10309957 (Version 1)
Quarter: 2014Q3

REPORT INFORMATION
  Report Type: Spontaneous
  Country: US (occurrence: None)
  Receive Date: 20140715
  Receipt Date: 20140715
  Transmission Date: 20150326
  Serious: Yes (Disabling)
  Sender: FDA-Public Use
  Company Number: None

PATIENT
  Sex: Female
  Weight: 86.18 kg

DRUGS (10)
  1. XELODA [Concomitant]
     Active Substance: CAPECITABINE
  2. VIT. C [Concomitant]
  3. MAGNESIUM [Concomitant]
     Active Substance: MAGNESIUM
  4. SP HEPATROPHIN [Concomitant]
  5. MULTI VIT. AND MINERALS [Concomitant]
  6. CALCIUM [Concomitant]
     Active Substance: CALCIUM
  7. SINGULAIR [Concomitant]
     Active Substance: MONTELUKAST SODIUM
  8. ADVAIR HFA [Concomitant]
     Active Substance: FLUTICASONE PROPIONATE\SALMETEROL XINAFOATE
  9. TAMOXIFEN [Suspect]
     Active Substance: TAMOXIFEN
     Indication: BREAST CANCER METASTATIC
     Dosage: BY MOUTH, 1 PILL
     Dates: start: 20111101, end: 20131028
  10. VIT. D [Concomitant]

REACTIONS (28)
  - Anxiety [None]
  - Decreased interest [None]
  - Muscular weakness [None]
  - Alopecia [None]
  - Weight increased [None]
  - Weight loss poor [None]
  - Amenorrhoea [None]
  - Depression [None]
  - Irritability [None]
  - Carbohydrate antigen 27.29 increased [None]
  - Feeling of despair [None]
  - Anhedonia [None]
  - Chest pain [None]
  - Paraesthesia [None]
  - Dyspnoea [None]
  - Hot flush [None]
  - Cognitive disorder [None]
  - Insomnia [None]
  - Hyperhidrosis [None]
  - Fatigue [None]
  - Back pain [None]
  - Palpitations [None]
  - Headache [None]
  - Disturbance in attention [None]
  - Peripheral swelling [None]
  - Night sweats [None]
  - Arthralgia [None]
  - Bone pain [None]
